FAERS Safety Report 16777449 (Version 1)
Quarter: 2019Q3

REPORT INFORMATION
  Report Type: Spontaneous
  Country: US (occurrence: US)
  Receive Date: 20190905
  Receipt Date: 20190905
  Transmission Date: 20191005
  Serious: Yes (Hospitalization)
  Sender: FDA-Public Use
  Company Number: US-TEVA-2019-US-1102283

PATIENT
  Age: 66 Year
  Sex: Male
  Weight: 128 kg

DRUGS (13)
  1. VITAMIN D [Concomitant]
     Active Substance: VITAMIN D NOS
  2. LORATADINE. [Concomitant]
     Active Substance: LORATADINE
  3. DULOXETINE. [Concomitant]
     Active Substance: DULOXETINE
  4. CARBIDOPA LEVODOPA [Concomitant]
     Active Substance: CARBIDOPA\LEVODOPA
  5. SITAGLIPTIN [Concomitant]
     Active Substance: SITAGLIPTIN
  6. LORAZEPAM. [Concomitant]
     Active Substance: LORAZEPAM
  7. LOSARTAN. [Concomitant]
     Active Substance: LOSARTAN
  8. METFORMIN [Concomitant]
     Active Substance: METFORMIN HYDROCHLORIDE
  9. ALBUTEROL. [Concomitant]
     Active Substance: ALBUTEROL
  10. ENTACAPONE. [Concomitant]
     Active Substance: ENTACAPONE
  11. MONTELUKAST [Concomitant]
     Active Substance: MONTELUKAST SODIUM
  12. CLOZAPINE. [Suspect]
     Active Substance: CLOZAPINE
     Indication: PARKINSON^S DISEASE PSYCHOSIS
  13. ASPIRIN. [Concomitant]
     Active Substance: ASPIRIN

REACTIONS (5)
  - Pneumonia aspiration [Unknown]
  - Lethargy [Unknown]
  - Product prescribing error [Unknown]
  - Agitation [Unknown]
  - Product use in unapproved indication [Unknown]

NARRATIVE: CASE EVENT DATE: 20190828
